FAERS Safety Report 8398003-8 (Version None)
Quarter: 2012Q2

REPORT INFORMATION
  Report Type: 
  Country: None (occurrence: None)
  Receive Date: 20120531
  Receipt Date: 20120523
  Transmission Date: 20120825
  Serious: Yes (Other)
  Sender: FDA-Public Use
  Company Number: US-JNJFOC-20110509291

PATIENT
  Sex: Male

DRUGS (3)
  1. PREDNISONE TAB [Suspect]
     Indication: ACUTE SINUSITIS
     Route: 048
  2. LEVAQUIN [Suspect]
     Indication: SINUSITIS
     Route: 048
     Dates: start: 20090220, end: 20090305
  3. LIPITOR [Concomitant]
     Dates: start: 20000101

REACTIONS (3)
  - EPICONDYLITIS [None]
  - TENDON RUPTURE [None]
  - TENDONITIS [None]
